FAERS Safety Report 16033848 (Version 1)
Quarter: 2019Q1

REPORT INFORMATION
  Report Type: Spontaneous
  Country: ES (occurrence: ES)
  Receive Date: 20190305
  Receipt Date: 20190305
  Transmission Date: 20190418
  Serious: Yes (Life-Threatening, Hospitalization)
  Sender: FDA-Public Use
  Company Number: ES-SUN PHARMACEUTICAL INDUSTRIES LTD-2019RR-200706

PATIENT
  Age: 71 Year
  Sex: Male

DRUGS (6)
  1. GABAPENTINA (2641A) [Concomitant]
     Active Substance: GABAPENTIN
     Indication: SCHIZOPHRENIA
     Dosage: 100 MILLIGRAM, TID
     Route: 048
     Dates: start: 201701, end: 20181227
  2. SERTRALINE [Suspect]
     Active Substance: SERTRALINE HYDROCHLORIDE
     Indication: SCHIZOPHRENIA
     Dosage: 100 MILLIGRAM, DAILY
     Route: 048
     Dates: start: 201701, end: 20181221
  3. BIPERIDENO (500A) [Concomitant]
     Indication: SCHIZOPHRENIA
     Dosage: 4 MILLIGRAM, DAILY
     Route: 048
     Dates: start: 20181203, end: 20181227
  4. ABILIFY MAINTENA [Interacting]
     Active Substance: ARIPIPRAZOLE
     Indication: SCHIZOPHRENIA
     Dosage: 300 MILLIGRAM, DAILY
     Route: 030
     Dates: start: 20181217, end: 20181217
  5. VALPROATO SODIO (3194SO) [Concomitant]
     Active Substance: VALPROATE SODIUM
     Indication: SCHIZOPHRENIA
     Dosage: 500 MILLIGRAM, BID
     Route: 048
     Dates: start: 201701, end: 20181221
  6. QUETIAPINA (1136A) [Interacting]
     Active Substance: QUETIAPINE
     Indication: SCHIZOPHRENIA
     Dosage: 100 MILLIGRAM, TID
     Route: 048
     Dates: start: 201708, end: 20181221

REACTIONS (1)
  - Neuroleptic malignant syndrome [Recovered/Resolved]

NARRATIVE: CASE EVENT DATE: 20181219
